FAERS Safety Report 9339703 (Version 2)
Quarter: 2013Q2

REPORT INFORMATION
  Report Type: Report from Study
  Country: BE (occurrence: BE)
  Receive Date: 20130610
  Receipt Date: 20130628
  Transmission Date: 20140414
  Serious: Yes (Death, Hospitalization)
  Sender: FDA-Public Use
  Company Number: BE-CELGENEUS-013-21880-13054496

PATIENT
  Age: 77 Year
  Sex: Female
  Weight: 61 kg

DRUGS (25)
  1. REVLIMID [Suspect]
     Indication: PLASMA CELL MYELOMA
     Dosage: 25 MILLIGRAM
     Route: 048
     Dates: start: 20110825, end: 20110914
  2. REVLIMID [Suspect]
     Dosage: 10 MILLIGRAM
     Route: 048
     Dates: start: 20120907, end: 20120927
  3. DEXAMETHASONE [Suspect]
     Indication: PLASMA CELL MYELOMA
     Dosage: 40
     Route: 065
     Dates: start: 20110825, end: 20110915
  4. DEXAMETHASONE [Suspect]
     Dosage: 40
     Route: 065
     Dates: start: 20120907, end: 20120928
  5. CARDIOASPIRIN [Concomitant]
     Indication: ANTICOAGULANT THERAPY
     Dosage: 100 MILLIGRAM
     Route: 048
     Dates: start: 20111117, end: 20111130
  6. CARDIOASPIRIN [Concomitant]
     Indication: ANTIPLATELET THERAPY
     Route: 048
  7. LYRICA [Concomitant]
     Indication: NEUROPATHY PERIPHERAL
     Dosage: 150 MILLIGRAM
     Route: 048
     Dates: start: 20100727
  8. ACTIFED [Concomitant]
     Indication: PNEUMONIA
     Dosage: 15 MILLILITER
     Route: 065
     Dates: start: 20111217, end: 20111229
  9. ASAFLOW [Concomitant]
     Indication: ANTICOAGULANT THERAPY
     Dosage: 80 MILLIGRAM
     Route: 065
     Dates: start: 20111201, end: 20111214
  10. ASAFLOW [Concomitant]
     Indication: ANTIPLATELET THERAPY
     Dosage: 160 MILLIGRAM
     Route: 065
     Dates: start: 20111215
  11. AUGMENTIN [Concomitant]
     Indication: PNEUMONIA
     Dosage: 3 GRAM
     Route: 041
     Dates: start: 20111215, end: 20111215
  12. AUGMENTIN [Concomitant]
     Indication: PROPHYLAXIS
     Dosage: 4 GRAM
     Route: 048
     Dates: start: 20111216, end: 20111218
  13. AUGMENTIN [Concomitant]
     Dosage: 1750 MILLIGRAM
     Route: 048
     Dates: start: 20111219, end: 20111228
  14. AUGMENTIN [Concomitant]
     Dosage: 2 GRAM
     Route: 041
     Dates: start: 20111219, end: 20111219
  15. AUGMENTIN [Concomitant]
     Dosage: 1750 MILLIGRAM
     Route: 048
     Dates: start: 20111229, end: 20120126
  16. DAFLON [Concomitant]
     Indication: DEEP VEIN THROMBOSIS
     Dosage: 500 MILLIGRAM
     Route: 048
     Dates: start: 20100601
  17. DUROGESIC [Concomitant]
     Indication: BONE PAIN
     Route: 062
     Dates: start: 20091215, end: 20111228
  18. DUROGESIC [Concomitant]
     Route: 062
     Dates: start: 20111229
  19. FRAXIPARINE [Concomitant]
     Indication: ANTICOAGULANT THERAPY
     Dosage: .8 MILLILITER
     Route: 058
     Dates: start: 20111216, end: 20111216
  20. FRAXIPARINE [Concomitant]
     Indication: ANTIPLATELET THERAPY
     Dosage: .4 MILLILITER
     Route: 058
     Dates: start: 20111217, end: 20111219
  21. FRAXODI [Concomitant]
     Indication: ANTICOAGULANT THERAPY
     Dosage: .6 MILLILITER
     Route: 058
     Dates: start: 20110825, end: 20111116
  22. FRAXODI [Concomitant]
     Indication: ANTIPLATELET THERAPY
     Route: 058
  23. PARACETAMOL [Concomitant]
     Indication: PNEUMONIA
     Dosage: 1 GRAM
     Route: 041
     Dates: start: 20111215, end: 20111219
  24. MS CONTIN [Concomitant]
     Indication: BONE PAIN
     Dosage: 10 MILLIGRAM
     Route: 048
     Dates: start: 20091110, end: 20111215
  25. ZOPICLONE [Concomitant]
     Indication: PROPHYLAXIS
     Dosage: 15 MILLIGRAM
     Route: 048
     Dates: start: 20101116

REACTIONS (1)
  - Adenocarcinoma [Fatal]
